FAERS Safety Report 6215661-4 (Version None)
Quarter: 2009Q2

REPORT INFORMATION
  Report Type: 
  Country: None (occurrence: None)
  Receive Date: 20090605
  Receipt Date: 20090525
  Transmission Date: 20091009
  Serious: Yes (Other)
  Sender: FDA-Public Use
  Company Number: PHHY2009US20638

PATIENT
  Age: 66 Year
  Sex: Female

DRUGS (6)
  1. PAMIDRONATE DISODIUM [Suspect]
     Indication: HYPERCALCAEMIA
  2. PAMIDRONATE DISODIUM [Suspect]
     Indication: OSTEOPOROSIS
  3. PAMIDRONATE DISODIUM [Suspect]
     Indication: BREAST CANCER
  4. ALENDRONATE SODIUM [Suspect]
     Indication: HYPERCALCAEMIA
  5. ALENDRONATE SODIUM [Suspect]
     Indication: OSTEOPOROSIS
  6. ALENDRONATE SODIUM [Suspect]
     Indication: BREAST CANCER

REACTIONS (2)
  - DEBRIDEMENT [None]
  - OSTEONECROSIS [None]
